FAERS Safety Report 23934468 (Version 1)
Quarter: 2024Q2

REPORT INFORMATION
  Report Type: Spontaneous
  Country: US (occurrence: US)
  Receive Date: 20240603
  Receipt Date: 20240603
  Transmission Date: 20240716
  Serious: Yes (Other)
  Sender: FDA-Public Use
  Company Number: US-AKCEA THERAPEUTICS, INC.-2024IS004812

PATIENT

DRUGS (11)
  1. TEGSEDI [Suspect]
     Active Substance: INOTERSEN SODIUM
     Indication: Hereditary neuropathic amyloidosis
     Dosage: 284 MG/ 1.5 ML, QW
     Route: 058
     Dates: start: 20200106
  2. ACETAMINOPHEN AND CODEINE [Concomitant]
     Active Substance: ACETAMINOPHEN\CODEINE PHOSPHATE
     Indication: Product used for unknown indication
     Dosage: 1 DOSAGE FORM, PRN (2-4HR) (ACETAMINOPHEN 300, CODEINE 60 MG)
     Route: 048
  3. BACLOFEN [Concomitant]
     Active Substance: BACLOFEN
     Indication: Product used for unknown indication
     Dosage: 1 DOSAGE FORM, TID (PRN)
     Route: 048
  4. DIVALPROEX SODIUM [Concomitant]
     Active Substance: DIVALPROEX SODIUM
     Indication: Product used for unknown indication
     Dosage: 1 DOSAGE FORM, BID
     Route: 048
  5. MEDROXYPROGESTERONE [Concomitant]
     Active Substance: MEDROXYPROGESTERONE
     Indication: Product used for unknown indication
     Dosage: 1 DOSAGE FORM, QD
     Route: 048
  6. METFORMIN [Concomitant]
     Active Substance: METFORMIN HYDROCHLORIDE
     Indication: Product used for unknown indication
     Dosage: 1 DOSAGE FORM, QD
     Route: 048
  7. CYCLOBENZAPRINE [Concomitant]
     Active Substance: CYCLOBENZAPRINE
     Indication: Product used for unknown indication
     Dosage: 1 DOSAGE FORM, TID
     Route: 048
  8. ATORVASTATIN [Concomitant]
     Active Substance: ATORVASTATIN
     Indication: Product used for unknown indication
     Dosage: 1 DOSAGE FORM, QD
     Route: 048
  9. DULOXETINE [Concomitant]
     Active Substance: DULOXETINE
     Indication: Product used for unknown indication
     Dosage: 1 DOSAGE FORM, QD
     Route: 048
  10. ASPIRIN [Concomitant]
     Active Substance: ASPIRIN
     Indication: Product used for unknown indication
     Dosage: 1 DOSAGE FORM, QD
     Route: 048
  11. LYRICA [Concomitant]
     Active Substance: PREGABALIN
     Indication: Product used for unknown indication
     Dosage: 1 DOSAGE FORM, BID
     Route: 048
     Dates: start: 20200121, end: 20200419

REACTIONS (30)
  - Seizure [Unknown]
  - Asthenia [Unknown]
  - Fatigue [Unknown]
  - Insomnia [Unknown]
  - Stress [Unknown]
  - Ataxia [Unknown]
  - Urinary incontinence [Unknown]
  - Chest pain [Unknown]
  - Confusional state [Unknown]
  - Dizziness [Unknown]
  - Gait disturbance [Unknown]
  - Pain [Unknown]
  - Headache [Unknown]
  - Dyskinesia [Unknown]
  - Nausea [Unknown]
  - Hypoaesthesia [Unknown]
  - Visual impairment [Unknown]
  - Empty sella syndrome [Unknown]
  - Eyelid ptosis [Unknown]
  - Vision blurred [Unknown]
  - Eyelid function disorder [Unknown]
  - Infection [Unknown]
  - Muscular weakness [Unknown]
  - Tongue paralysis [Unknown]
  - Sensory disturbance [Unknown]
  - Muscle spasticity [Unknown]
  - Orthostatic hypotension [Unknown]
  - Weight increased [Unknown]
  - Oedema peripheral [Unknown]
  - Neck pain [Unknown]

NARRATIVE: CASE EVENT DATE: 20200909
